FAERS Safety Report 9109092 (Version 1)
Quarter: 2013Q1

REPORT INFORMATION
  Report Type: Report from Study
  Country: US (occurrence: US)
  Receive Date: 20130222
  Receipt Date: 20130222
  Transmission Date: 20140127
  Serious: Yes (Hospitalization, Other)
  Sender: FDA-Public Use
  Company Number: US-VIIV HEALTHCARE LIMITED-B0826163A

PATIENT
  Age: 42 Year
  Sex: Male
  Weight: 81.8 kg

DRUGS (13)
  1. UNSPECIFIED [Suspect]
     Indication: HIV INFECTION
  2. EPIVIR [Suspect]
     Indication: HIV INFECTION
     Route: 048
     Dates: start: 20120613, end: 20120616
  3. INTELENCE [Concomitant]
     Indication: HIV INFECTION
     Dosage: 200MG TWICE PER DAY
     Route: 048
  4. ISENTRESS [Concomitant]
     Indication: HIV INFECTION
     Dosage: 400MG TWICE PER DAY
     Route: 048
  5. DARUNAVIR [Concomitant]
     Indication: HIV INFECTION
     Dosage: 600MG TWICE PER DAY
     Route: 048
  6. TRUVADA [Concomitant]
     Indication: HIV INFECTION
     Dosage: 1TAB PER DAY
     Route: 048
  7. NORVIR [Concomitant]
     Indication: HIV INFECTION
     Dosage: 100MG TWICE PER DAY
     Route: 048
  8. BENADRYL [Concomitant]
     Dosage: 25MG AS REQUIRED
  9. ATIVAN [Concomitant]
     Dosage: 1MG AS REQUIRED
     Route: 042
  10. PROMETHAZINE [Concomitant]
     Dosage: 12.5MG AS REQUIRED
  11. ZOLPIDEM [Concomitant]
     Dosage: 5MG AS REQUIRED
  12. ACYCLOVIR [Concomitant]
     Indication: HERPES VIRUS INFECTION
     Route: 048
     Dates: start: 2007
  13. COMBIVENT [Concomitant]
     Indication: ASTHMA
     Route: 055
     Dates: start: 2007

REACTIONS (2)
  - Acute psychosis [Recovered/Resolved with Sequelae]
  - Genital herpes [Recovered/Resolved with Sequelae]
